FAERS Safety Report 13653770 (Version 1)
Quarter: 2017Q2

REPORT INFORMATION
  Report Type: Report from Study
  Country: CA (occurrence: CA)
  Receive Date: 20170614
  Receipt Date: 20170614
  Transmission Date: 20170830
  Serious: Yes (Hospitalization)
  Sender: FDA-Public Use
  Company Number: CA-HLSUS-2017-CA-000423

PATIENT
  Age: 78 Year
  Sex: Female

DRUGS (7)
  1. CENTRUM FORTE [Concomitant]
     Dosage: ONCE DAILY
     Route: 048
     Dates: end: 20170421
  2. ALTACE [Concomitant]
     Active Substance: RAMIPRIL
     Dosage: 10 MG ONCE DAILY
     Route: 048
     Dates: end: 20170421
  3. ISOPTO TEAR DROPS [Concomitant]
     Dosage: 1 DROP BEDTIME
     Route: 047
     Dates: end: 20170420
  4. DULCOLAX NOS [Concomitant]
     Active Substance: BISACODYL OR DOCUSATE SODIUM
     Dosage: 10 MG EVERY 2 DAYS
     Route: 054
     Dates: end: 20170419
  5. CLOZARIL [Suspect]
     Active Substance: CLOZAPINE
     Dosage: 100 MG
     Route: 048
     Dates: start: 20130228, end: 20170421
  6. VITAMIN D [Concomitant]
     Active Substance: CHOLECALCIFEROL
     Dosage: 1000 UNIT ONCE DAILY
     Route: 048
     Dates: end: 20170421
  7. LIPITOR [Concomitant]
     Active Substance: ATORVASTATIN CALCIUM
     Dosage: 10 MG
     Route: 048
     Dates: end: 20170419

REACTIONS (20)
  - Vomiting [Unknown]
  - Myocardial infarction [Unknown]
  - Chest pain [Unknown]
  - Haematemesis [Unknown]
  - Intervertebral disc degeneration [Unknown]
  - Renal cyst [Unknown]
  - Hyperadrenalism [Unknown]
  - Abdominal distension [Unknown]
  - Bundle branch block left [Unknown]
  - Myocardial ischaemia [Unknown]
  - Nausea [Unknown]
  - Aortic arteriosclerosis [Unknown]
  - Pleural effusion [Unknown]
  - Compression fracture [Unknown]
  - Small intestinal obstruction [Recovering/Resolving]
  - Hernia [Unknown]
  - Ileus [Unknown]
  - Sinus tachycardia [Unknown]
  - Breast mass [Unknown]
  - Gastrointestinal wall thickening [Unknown]

NARRATIVE: CASE EVENT DATE: 20170421
